FAERS Safety Report 8417096-2 (Version None)
Quarter: 2012Q2

REPORT INFORMATION
  Report Type: 
  Country: None (occurrence: None)
  Receive Date: 20120606
  Receipt Date: 20120525
  Transmission Date: 20120825
  Serious: Yes (Hospitalization, Other)
  Sender: FDA-Public Use
  Company Number: FR-BRISTOL-MYERS SQUIBB COMPANY-16643942

PATIENT
  Age: 51 Year
  Sex: Female

DRUGS (4)
  1. NORVIR [Interacting]
     Indication: HIV INFECTION
     Dosage: DRUG STOPPED. 1DF: 1INTAKE
     Route: 048
     Dates: start: 20100118, end: 20110914
  2. REYATAZ [Suspect]
     Indication: HIV INFECTION
     Dosage: DRUG STOPPED.
     Route: 048
     Dates: start: 20100118, end: 20110914
  3. TRUVADA [Interacting]
     Indication: HIV INFECTION
     Dosage: DRUG STOPPED. 1DF: 1INTAKE
     Route: 048
     Dates: start: 20100118, end: 20110914
  4. ZIAGEN [Interacting]
     Indication: HIV INFECTION
     Dosage: DRUG STOPPED ON 14-SEP-2011 AND REINTRODUCED ON 29-NOV-2011 1DF: 1INTAKE
     Route: 048
     Dates: start: 20100118

REACTIONS (2)
  - RENAL FAILURE ACUTE [None]
  - DRUG INTERACTION [None]
